FAERS Safety Report 19222628 (Version 1)
Quarter: 2021Q2

REPORT INFORMATION
  Report Type: Spontaneous
  Country: US (occurrence: US)
  Receive Date: 20210506
  Receipt Date: 20210506
  Transmission Date: 20210717
  Serious: Yes (Other)
  Sender: FDA-Public Use
  Company Number: US-STRIDES ARCOLAB LIMITED-2021SP005112

PATIENT
  Age: 61 Year
  Sex: Male

DRUGS (2)
  1. HYDROCORTISONE. [Suspect]
     Active Substance: HYDROCORTISONE
     Indication: EVIDENCE BASED TREATMENT
     Dosage: UNK
     Route: 065
  2. LEVOTHYROXINE [LEVOTHYROXINE SODIUM] [Suspect]
     Active Substance: LEVOTHYROXINE SODIUM
     Indication: EVIDENCE BASED TREATMENT
     Dosage: UNK, LOW DOSE
     Route: 065

REACTIONS (2)
  - Diabetes insipidus [Recovered/Resolved]
  - Unmasking of previously unidentified disease [Recovered/Resolved]
